FAERS Safety Report 8556406-2 (Version None)
Quarter: 2012Q3

REPORT INFORMATION
  Report Type: 
  Country: None (occurrence: None)
  Receive Date: 20120801
  Receipt Date: 20120725
  Transmission Date: 20120928
  Serious: Yes (Other)
  Sender: FDA-Public Use
  Company Number: PHHY2012BR065132

PATIENT
  Age: 86 Year
  Sex: Female

DRUGS (3)
  1. STALEVO 100 [Suspect]
     Indication: PARKINSON'S DISEASE
     Dosage: 1 DF (200/50/12.5 MG), DAILY
  2. STALEVO 100 [Suspect]
     Dosage: 2 DF (200/50/12.5 MG), DAILY
  3. EXELON [Suspect]
     Indication: DEMENTIA ALZHEIMER'S TYPE
     Dosage: 4.6 MG, QD
     Route: 062

REACTIONS (6)
  - FALL [None]
  - MEMORY IMPAIRMENT [None]
  - BALANCE DISORDER [None]
  - JOINT LOCK [None]
  - LOOSE ASSOCIATIONS [None]
  - HEAD INJURY [None]
